FAERS Safety Report 10190395 (Version 1)
Quarter: 2014Q2

REPORT INFORMATION
  Report Type: Spontaneous
  Country: US (occurrence: US)
  Receive Date: 20140522
  Receipt Date: 20140522
  Transmission Date: 20141212
  Serious: Yes (Other)
  Sender: FDA-Public Use
  Company Number: US-ENDO PHARMACEUTICALS INC.-SPIR20140004

PATIENT
  Sex: Male

DRUGS (4)
  1. SPIRONOLACTONE TABLETS [Suspect]
     Indication: OEDEMA
     Route: 048
  2. SPIRONOLACTONE TABLETS [Suspect]
     Indication: ACNE
     Route: 048
  3. SPIRONOLACTONE TABLETS [Suspect]
     Route: 048
  4. SPIRONOLACTONE TABLETS [Suspect]
     Route: 048

REACTIONS (6)
  - Hepatic enzyme increased [Unknown]
  - Flushing [Unknown]
  - Eye swelling [Unknown]
  - Peripheral swelling [Unknown]
  - Joint swelling [Unknown]
  - Drug ineffective [Unknown]
